FAERS Safety Report 7006513-0 (Version None)
Quarter: 2010Q3

REPORT INFORMATION
  Report Type: 
  Country: None (occurrence: None)
  Receive Date: 20100921
  Receipt Date: 20100921
  Transmission Date: 20110219
  Serious: Yes (Other)
  Sender: FDA-Public Use
  Company Number: None

PATIENT
  Age: 50 Year
  Sex: Male
  Weight: 102.0593 kg

DRUGS (2)
  1. OXYCONTIN [Suspect]
     Indication: PAIN
     Dosage: 80MG X 3 PO  (USING UNTILL DR VISIT
     Route: 048
     Dates: start: 20100913, end: 20100920
  2. OXYCONTIN [Suspect]
     Indication: PAIN
     Dosage: 60MG X 2 PO
     Route: 048
     Dates: start: 20100913, end: 20100920

REACTIONS (7)
  - ABDOMINAL DISTENSION [None]
  - ABDOMINAL PAIN [None]
  - ABNORMAL FAECES [None]
  - DRUG EFFECT DECREASED [None]
  - HEADACHE [None]
  - PRODUCT QUALITY ISSUE [None]
  - PRODUCT SOLUBILITY ABNORMAL [None]
